FAERS Safety Report 7990665-X (Version None)
Quarter: 2011Q4

REPORT INFORMATION
  Report Type: 
  Country: None (occurrence: None)
  Receive Date: 20111219
  Receipt Date: 20111209
  Transmission Date: 20120403
  Serious: Yes (Hospitalization)
  Sender: FDA-Public Use
  Company Number: US-BAYER-2011-083362

PATIENT
  Age: 26 Year
  Sex: Female
  Weight: 74.83 kg

DRUGS (1)
  1. DROSPIRENONE AND ETHINYL ESTRADIOL [Suspect]
     Indication: PREMENSTRUAL SYNDROME
     Dosage: UNK
     Dates: start: 20060101, end: 20100101

REACTIONS (6)
  - EMOTIONAL DISTRESS [None]
  - PAIN [None]
  - ANHEDONIA [None]
  - CHOLECYSTECTOMY [None]
  - ANXIETY [None]
  - INJURY [None]
